FAERS Safety Report 7598601-5 (Version None)
Quarter: 2011Q3

REPORT INFORMATION
  Report Type: 
  Country: None (occurrence: None)
  Receive Date: 20110710
  Receipt Date: 20110630
  Transmission Date: 20111222
  Serious: Yes (Hospitalization)
  Sender: FDA-Public Use
  Company Number: JP-AMGEN-JPNCT2011024787

PATIENT
  Age: 57 Year
  Sex: Male
  Weight: 74 kg

DRUGS (5)
  1. IRINOTECAN HCL [Concomitant]
     Indication: COLORECTAL CANCER
     Route: 041
     Dates: start: 20110328, end: 20110508
  2. URINORM [Concomitant]
     Route: 048
  3. NORVASC [Concomitant]
     Route: 048
  4. PANITUMUMAB [Suspect]
     Indication: COLORECTAL CANCER
     Dosage: 430 MG, Q2WK
     Route: 041
     Dates: start: 20110328, end: 20110508
  5. URALYT [Concomitant]
     Route: 048

REACTIONS (1)
  - DEEP VEIN THROMBOSIS [None]
